FAERS Safety Report 14658025 (Version 1)
Quarter: 2018Q1

REPORT INFORMATION
  Report Type: Spontaneous
  Country: US (occurrence: US)
  Receive Date: 20180320
  Receipt Date: 20180320
  Transmission Date: 20180509
  Serious: No
  Sender: FDA-Public Use
  Company Number: US-TEVA-823554ACC

PATIENT
  Age: 19 Year
  Sex: Female

DRUGS (1)
  1. NORTRIPTYLINE HYDROCHLORIDE CAPSULES [Suspect]
     Active Substance: NORTRIPTYLINE HYDROCHLORIDE
     Indication: ANXIETY
     Dates: start: 201710

REACTIONS (4)
  - Product use complaint [Unknown]
  - Anxiety [Unknown]
  - Product size issue [Unknown]
  - Product shape issue [Unknown]

NARRATIVE: CASE EVENT DATE: 20171003
